FAERS Safety Report 10219731 (Version 1)
Quarter: 2014Q2

REPORT INFORMATION
  Report Type: Spontaneous
  Country: TR (occurrence: TR)
  Receive Date: 20140605
  Receipt Date: 20140605
  Transmission Date: 20141212
  Serious: Yes (Life-Threatening, Hospitalization)
  Sender: FDA-Public Use
  Company Number: TR-WATSON-2014-12363

PATIENT
  Age: 18 Year
  Sex: Female

DRUGS (2)
  1. PROPAFENONE (WATSON LABORATORIES) [Suspect]
     Indication: SUICIDE ATTEMPT
     Dosage: 30 TABLETS, 300 MG EACH
     Route: 065
  2. CAPTOPRIL [Suspect]
     Indication: SUICIDE ATTEMPT
     Dosage: 20 TABLETS, 50 MG EACH
     Route: 065

REACTIONS (14)
  - Cardiac arrest [Recovered/Resolved]
  - Ventricular arrhythmia [Recovered/Resolved]
  - Coma [Recovered/Resolved]
  - Electrocardiogram QRS complex prolonged [Recovered/Resolved]
  - Heart rate decreased [Recovered/Resolved]
  - Blood pressure decreased [Recovered/Resolved]
  - Oxygen saturation decreased [Recovered/Resolved]
  - Suicide attempt [Recovered/Resolved]
  - Intentional overdose [Recovered/Resolved]
  - Loss of consciousness [None]
  - Rhythm idioventricular [None]
  - Haemodynamic instability [None]
  - Hypopnoea [None]
  - Pupillary reflex impaired [None]
